FAERS Safety Report 8028258-0 (Version None)
Quarter: 2012Q1

REPORT INFORMATION
  Report Type: 
  Country: None (occurrence: None)
  Receive Date: 20120106
  Receipt Date: 20120104
  Transmission Date: 20120608
  Serious: Yes (Death)
  Sender: FDA-Public Use
  Company Number: US-SHIRE-ALL1-2012-00028

PATIENT
  Sex: Female

DRUGS (2)
  1. FOSRENOL [Suspect]
     Indication: HYPERPHOSPHATAEMIA
     Dosage: 1000 MG, 3X/DAY ( WITH MEALS):TID
     Route: 048
  2. FOSRENOL [Suspect]
     Indication: RENAL FAILURE CHRONIC

REACTIONS (1)
  - DEATH [None]
